FAERS Safety Report 7911325-7 (Version None)
Quarter: 2011Q4

REPORT INFORMATION
  Report Type: 
  Country: None (occurrence: None)
  Receive Date: 20111114
  Receipt Date: 20111107
  Transmission Date: 20120403
  Serious: Yes (Death, Hospitalization, Other)
  Sender: FDA-Public Use
  Company Number: US-ELI_LILLY_AND_COMPANY-US201111002042

PATIENT
  Sex: Male

DRUGS (2)
  1. HUMALOG [Suspect]
     Indication: TYPE 2 DIABETES MELLITUS
     Dosage: UNK, UNKNOWN
  2. HUMALOG [Suspect]
     Dosage: UNK, UNKNOWN

REACTIONS (7)
  - CARDIAC DISORDER [None]
  - MYOCARDIAL INFARCTION [None]
  - RENAL FAILURE [None]
  - CARDIAC OPERATION [None]
  - MALAISE [None]
  - FLUID RETENTION [None]
  - CARDIAC PACEMAKER INSERTION [None]
